FAERS Safety Report 8341141-6 (Version None)
Quarter: 2012Q2

REPORT INFORMATION
  Report Type: 
  Country: None (occurrence: None)
  Receive Date: 20120507
  Receipt Date: 20120501
  Transmission Date: 20120825
  Serious: Yes (Hospitalization, Other)
  Sender: FDA-Public Use
  Company Number: JP-GILEAD-E2B_00001066

PATIENT
  Age: 54 Year
  Sex: Male

DRUGS (7)
  1. LAMIVUDINE [Suspect]
     Indication: HEPATITIS B
     Dosage: 100MG PER DAY
     Route: 048
     Dates: start: 20041017, end: 20100223
  2. NEUROVITAN                         /00280501/ [Concomitant]
     Route: 048
  3. HEPSERA [Suspect]
     Dosage: 10MG PER DAY
     Route: 048
     Dates: start: 20060328, end: 20100318
  4. GASTER                             /00706001/ [Concomitant]
     Route: 065
  5. HEPSERA [Suspect]
     Route: 048
     Dates: start: 20100223, end: 20100319
  6. HEPSERA [Suspect]
     Indication: HEPATITIS B
     Route: 048
     Dates: start: 20060328
  7. URSO                               /00465701/ [Concomitant]
     Route: 048

REACTIONS (15)
  - RIB FRACTURE [None]
  - OSTEOPOROSIS [None]
  - SPINAL COMPRESSION FRACTURE [None]
  - PELVIC FRACTURE [None]
  - HYPOPHOSPHATAEMIA [None]
  - METABOLIC ACIDOSIS [None]
  - URINE PHOSPHORUS DECREASED [None]
  - PAIN IN EXTREMITY [None]
  - RENAL IMPAIRMENT [None]
  - OSTEONECROSIS [None]
  - RENAL TUBULAR DISORDER [None]
  - AMINOACIDURIA [None]
  - FANCONI SYNDROME ACQUIRED [None]
  - GAIT DISTURBANCE [None]
  - PROTEIN URINE PRESENT [None]
